FAERS Safety Report 9797983 (Version 1)
Quarter: 2014Q1

REPORT INFORMATION
  Report Type: Spontaneous
  Country: US (occurrence: None)
  Receive Date: 20140102
  Receipt Date: 20140102
  Transmission Date: 20141002
  Serious: No
  Sender: FDA-Public Use
  Company Number: None

PATIENT
  Age: 53 Year
  Sex: Male
  Weight: 108.9 kg

DRUGS (1)
  1. METFORMIN [Suspect]
     Route: 048
     Dates: start: 20130513, end: 20130903

REACTIONS (1)
  - Diarrhoea [None]
